FAERS Safety Report 4290036-6 (Version None)
Quarter: 2004Q1

REPORT INFORMATION
  Report Type: 
  Country: None (occurrence: None)
  Receive Date: 20040209
  Receipt Date: 20031106
  Transmission Date: 20041129
  Serious: Yes (Hospitalization, Other)
  Sender: FDA-Public Use
  Company Number: USA031049746

PATIENT
  Age: 45 Year
  Sex: Female

DRUGS (2)
  1. EVISTA [Suspect]
  2. ORAL CONTRACEPTIVE NOS [Concomitant]

REACTIONS (1)
  - DEEP VEIN THROMBOSIS [None]
